FAERS Safety Report 11127985 (Version 1)
Quarter: 2015Q2

REPORT INFORMATION
  Report Type: Report from Study
  Country: US (occurrence: US)
  Receive Date: 20150521
  Receipt Date: 20150521
  Transmission Date: 20150821
  Serious: Yes (Hospitalization)
  Sender: FDA-Public Use
  Company Number: US-ROCHE-1575041

PATIENT
  Age: 27 Year
  Sex: Male
  Weight: 69.46 kg

DRUGS (8)
  1. VEMURAFENIB [Suspect]
     Active Substance: VEMURAFENIB
     Indication: MALIGNANT MELANOMA
     Route: 048
     Dates: start: 20150406
  2. COBIMETINIB [Suspect]
     Active Substance: COBIMETINIB
     Route: 048
     Dates: start: 20150426
  3. DIPHENHYDRAMINE HCL [Concomitant]
     Active Substance: DIPHENHYDRAMINE HYDROCHLORIDE
     Route: 048
  4. PERCOCET [Concomitant]
     Active Substance: ACETAMINOPHEN\OXYCODONE HYDROCHLORIDE
     Dosage: 7.5-325MG
     Route: 048
  5. OXYCODONE HCL [Concomitant]
     Active Substance: OXYCODONE HYDROCHLORIDE
     Route: 048
  6. COBIMETINIB [Suspect]
     Active Substance: COBIMETINIB
     Indication: MALIGNANT MELANOMA
     Route: 048
     Dates: start: 20150406
  7. PREDNISONE. [Concomitant]
     Active Substance: PREDNISONE
     Dosage: 3.5
     Route: 048
  8. HYDROXYZINE HCL [Concomitant]
     Active Substance: HYDROXYZINE HYDROCHLORIDE
     Route: 048

REACTIONS (9)
  - Pruritus [Unknown]
  - Pyrexia [Unknown]
  - Headache [Unknown]
  - Diarrhoea [Unknown]
  - Dyspnoea [Unknown]
  - Photosensitivity reaction [Unknown]
  - Vision blurred [Unknown]
  - Pain [Unknown]
  - Chills [Unknown]

NARRATIVE: CASE EVENT DATE: 20150415
